FAERS Safety Report 24139171 (Version 1)
Quarter: 2024Q3

REPORT INFORMATION
  Report Type: Spontaneous
  Country: US (occurrence: US)
  Receive Date: 20240726
  Receipt Date: 20240726
  Transmission Date: 20241016
  Serious: Yes (Other)
  Sender: CELLTRION
  Company Number: US-CELLTRION INC.-2024US017573

PATIENT

DRUGS (1)
  1. RITUXIMAB [Suspect]
     Active Substance: RITUXIMAB
     Indication: Optic neuritis
     Dosage: EVERY 6 MONTHS

REACTIONS (3)
  - Crohn^s disease [Recovered/Resolved]
  - Perirectal abscess [Recovered/Resolved]
  - Drug effective for unapproved indication [Unknown]
